FAERS Safety Report 5792096-X (Version None)
Quarter: 2008Q2

REPORT INFORMATION
  Report Type: 
  Country: None (occurrence: None)
  Receive Date: 20080623
  Receipt Date: 20080605
  Transmission Date: 20081010
  Serious: Yes (Other)
  Sender: FDA-Public Use
  Company Number: 19538

PATIENT
  Age: 15 Year
  Sex: Female

DRUGS (2)
  1. CYTARABINE [Suspect]
     Indication: LEUKAEMIA RECURRENT
  2. ALL OTHER THERAPEUTIC PRODUCTS [Concomitant]

REACTIONS (2)
  - CSF TEST ABNORMAL [None]
  - DYSKINESIA [None]
